FAERS Safety Report 7827672-3 (Version None)
Quarter: 2011Q4

REPORT INFORMATION
  Report Type: 
  Country: None (occurrence: None)
  Receive Date: 20111020
  Receipt Date: 20111005
  Transmission Date: 20120403
  Serious: Yes (Life-Threatening, Hospitalization)
  Sender: FDA-Public Use
  Company Number: FR-ROCHE-1002542

PATIENT
  Age: 58 Year
  Sex: Female

DRUGS (6)
  1. ACETAMINOPHEN AND TRAMADOL HCL [Suspect]
     Indication: TOXICITY TO VARIOUS AGENTS
     Route: 002
     Dates: start: 20110525, end: 20110525
  2. CLONAZEPAM [Suspect]
     Indication: TOXICITY TO VARIOUS AGENTS
     Dosage: FLASK
     Route: 002
     Dates: start: 20110525, end: 20110525
  3. PRAZEPAM [Suspect]
     Indication: TOXICITY TO VARIOUS AGENTS
     Route: 002
     Dates: start: 20110525, end: 20110525
  4. LYRICA [Suspect]
     Indication: TOXICITY TO VARIOUS AGENTS
     Route: 002
     Dates: start: 20110525, end: 20110525
  5. ATARAX [Concomitant]
     Indication: PRODUCT USED FOR UNKNOWN INDICATION
  6. CYMBALTA [Concomitant]

REACTIONS (1)
  - TOXICITY TO VARIOUS AGENTS [None]
